FAERS Safety Report 14298483 (Version 10)
Quarter: 2018Q3

REPORT INFORMATION
  Report Type: Report from Study
  Country: US (occurrence: US)
  Receive Date: 20171218
  Receipt Date: 20180706
  Transmission Date: 20181010
  Serious: Yes (Death, Hospitalization)
  Sender: FDA-Public Use
  Company Number: US-ACTELION-A-NJ2017-164068

PATIENT
  Age: 67 Year
  Sex: Female
  Weight: 73.16 kg

DRUGS (3)
  1. REMODULIN [Concomitant]
     Active Substance: TREPROSTINIL
  2. REVATIO [Concomitant]
     Active Substance: SILDENAFIL CITRATE
  3. OPSUMIT [Suspect]
     Active Substance: MACITENTAN
     Indication: PULMONARY ARTERIAL HYPERTENSION
     Dosage: 10 MG, QD
     Route: 048

REACTIONS (21)
  - Yellow skin [Unknown]
  - Decreased appetite [Unknown]
  - Stress [Unknown]
  - Malaise [Unknown]
  - Device alarm issue [Recovered/Resolved]
  - Gastric mucosal lesion [Unknown]
  - Fall [Unknown]
  - Somnolence [Unknown]
  - Dizziness [Recovered/Resolved]
  - Mental status changes [Unknown]
  - Ocular icterus [Unknown]
  - Stomach mass [Unknown]
  - Hepatotoxicity [Unknown]
  - Syncope [Unknown]
  - Rhinovirus infection [Unknown]
  - Fatigue [Unknown]
  - Catheter placement [Unknown]
  - Abdominal pain upper [Unknown]
  - Pancreatic carcinoma metastatic [Fatal]
  - Rash [Unknown]
  - Pruritus [Unknown]
